FAERS Safety Report 13141159 (Version 1)
Quarter: 2017Q1

REPORT INFORMATION
  Report Type: Spontaneous
  Country: US (occurrence: US)
  Receive Date: 20170123
  Receipt Date: 20170123
  Transmission Date: 20170428
  Serious: Yes (Hospitalization)
  Sender: FDA-Public Use
  Company Number: None

PATIENT
  Age: 50 Year
  Sex: Male
  Weight: 99.4 kg

DRUGS (10)
  1. CIALIS [Concomitant]
     Active Substance: TADALAFIL
  2. CIALIS [Concomitant]
     Active Substance: TADALAFIL
  3. GLUCOPHAGE [Concomitant]
     Active Substance: METFORMIN HYDROCHLORIDE
  4. LIPITOR [Concomitant]
     Active Substance: ATORVASTATIN CALCIUM
  5. INSULIN GLARGINE (LANTUS SOLOSTAR) [Concomitant]
  6. LISINOPRIL (PRINIVIL;ZESTRIL) [Concomitant]
  7. EMPAGLIFLOZIN [Suspect]
     Active Substance: EMPAGLIFLOZIN
     Route: 048
  8. INSULIN PEN NEEDLE (PEN NEEDLES) [Concomitant]
  9. JARDIANCE [Concomitant]
     Active Substance: EMPAGLIFLOZIN
  10. VICTOZA [Concomitant]
     Active Substance: LIRAGLUTIDE

REACTIONS (2)
  - Thalamus haemorrhage [None]
  - Diabetic ketoacidosis [None]

NARRATIVE: CASE EVENT DATE: 20170107
